FAERS Safety Report 7175120-1 (Version None)
Quarter: 2010Q4

REPORT INFORMATION
  Report Type: 
  Country: None (occurrence: None)
  Receive Date: 20101207
  Receipt Date: 20101124
  Transmission Date: 20110411
  Serious: Yes (Other)
  Sender: FDA-Public Use
  Company Number: TRP_07416_2010

PATIENT
  Sex: Female
  Weight: 97.977 kg

DRUGS (6)
  1. INFERGEN 15 UG (NOT SPECIFIED) [Suspect]
     Indication: HEPATITIS C
     Dosage: (15 UG QD SUBCUTANEOUS)
     Route: 058
     Dates: start: 20101102
  2. RIBAVIRIN [Suspect]
     Indication: HEPATITIS C
     Dosage: (1200 MG, DAILY ORAL)
     Route: 048
     Dates: start: 20101102
  3. INTERFERON [Suspect]
     Indication: HEPATITIS C
     Dosage: (DF)
     Dates: start: 20100401, end: 20100101
  4. RIBAVIRIN [Suspect]
     Indication: HEPATITIS C
     Dosage: (DF)
     Dates: start: 20100401, end: 20100101
  5. METFORMIN HCL [Concomitant]
  6. LOVAZA [Concomitant]

REACTIONS (8)
  - ARTHRALGIA [None]
  - BACK PAIN [None]
  - DIARRHOEA [None]
  - DISEASE RECURRENCE [None]
  - DYSGEUSIA [None]
  - FATIGUE [None]
  - PAIN [None]
  - THROAT IRRITATION [None]
